FAERS Safety Report 9613555 (Version 5)
Quarter: 2014Q2

REPORT INFORMATION
  Report Type: Report from Study
  Country: US (occurrence: US)
  Receive Date: 20131010
  Receipt Date: 20140417
  Transmission Date: 20141212
  Serious: Yes (Death, Life-Threatening, Other)
  Sender: FDA-Public Use
  Company Number: US-ABBVIE-13P-163-1156376-00

PATIENT
  Age: 82 Year
  Sex: Male
  Weight: 98.06 kg

DRUGS (1)
  1. LUPRON DEPOT [Suspect]
     Indication: PROSTATE CANCER METASTATIC
     Route: 030
     Dates: start: 20121106, end: 20130809

REACTIONS (8)
  - Cardiac arrest [Fatal]
  - Intestinal obstruction [Fatal]
  - Arrhythmia [Fatal]
  - Brain injury [Fatal]
  - Conduction disorder [Fatal]
  - Orthopnoea [Unknown]
  - Nausea [Unknown]
  - Vomiting [Unknown]
